FAERS Safety Report 9335468 (Version 1)
Quarter: 2013Q2

REPORT INFORMATION
  Report Type: Report from Study
  Country: US (occurrence: US)
  Receive Date: 20130606
  Receipt Date: 20130606
  Transmission Date: 20140414
  Serious: Yes (Life-Threatening, Other)
  Sender: FDA-Public Use
  Company Number: US-009507513-0811USA02596

PATIENT
  Age: 62 Year
  Sex: Female
  Weight: 65.32 kg

DRUGS (9)
  1. SIMVASTATIN [Suspect]
     Indication: ACUTE CORONARY SYNDROME
     Route: 048
     Dates: start: 20070102
  2. CALTRATE WITH VITAMIN D [Concomitant]
     Dosage: 1200MG, QD
     Route: 048
     Dates: start: 20030101
  3. METHOTREXATE [Concomitant]
     Dosage: 5 MG, QW
     Route: 048
     Dates: start: 20060201
  4. ASPIRIN [Concomitant]
     Dosage: 81 MG, QD
     Route: 048
     Dates: start: 20061227
  5. PRINIVIL [Concomitant]
     Dosage: 2.5 MG, QD
     Route: 048
     Dates: start: 20061227
  6. METOPROLOL [Concomitant]
     Dosage: 25 MG, QD
     Route: 048
     Dates: start: 20061227
  7. OMEPRAZOLE [Concomitant]
     Dosage: 20 MG, PRN
     Route: 048
     Dates: start: 20080414
  8. AMITRIPTYLINE HYDROCHLORIDE [Concomitant]
     Dosage: 75 MG, QD
     Route: 048
     Dates: start: 20080605
  9. TESTOSTERONE [Concomitant]
     Dosage: 2 %, QD
     Route: 061
     Dates: start: 20080605

REACTIONS (1)
  - Intestinal adenocarcinoma [Recovered/Resolved]
